FAERS Safety Report 24777566 (Version 1)
Quarter: 2024Q4

REPORT INFORMATION
  Report Type: Spontaneous
  Country: GR (occurrence: GR)
  Receive Date: 20241226
  Receipt Date: 20241226
  Transmission Date: 20250115
  Serious: No
  Sender: PFIZER
  Company Number: GR-PFIZER INC-PV202400164949

PATIENT
  Age: 4 Year
  Sex: Female
  Weight: 15.5 kg

DRUGS (2)
  1. GENOTROPIN [Suspect]
     Active Substance: SOMATROPIN
     Indication: Turner^s syndrome
     Dosage: 0.6 MG FOR 5 DAYS AND 0.5 MG FOR 1 DAY
     Route: 058
     Dates: start: 202406
  2. GENOTROPIN [Suspect]
     Active Substance: SOMATROPIN
     Dosage: 0.6 MG FOR 5 DAYS AND 0.5 MG FOR 1 DAY
     Route: 058
     Dates: start: 202406

REACTIONS (2)
  - Device breakage [Not Recovered/Not Resolved]
  - Device leakage [Not Recovered/Not Resolved]
